FAERS Safety Report 25444467 (Version 2)
Quarter: 2025Q2

REPORT INFORMATION
  Report Type: Spontaneous
  Country: US (occurrence: US)
  Receive Date: 20250617
  Receipt Date: 20250630
  Transmission Date: 20250716
  Serious: No
  Sender: ROCHE
  Company Number: US-ROCHE-10000307695

PATIENT
  Age: 69 Year
  Sex: Female
  Weight: 56.7 kg

DRUGS (7)
  1. OCREVUS [Suspect]
     Active Substance: OCRELIZUMAB
     Indication: Secondary progressive multiple sclerosis
     Dosage: 9-APR COMPLETED SECOND HALF OF FIRST DOSE.
     Route: 042
     Dates: start: 20250326
  2. OCREVUS [Suspect]
     Active Substance: OCRELIZUMAB
     Route: 042
     Dates: start: 20250606
  3. COPAXONE [Concomitant]
     Active Substance: GLATIRAMER ACETATE
  4. AVONEX [Concomitant]
     Active Substance: INTERFERON BETA-1A
  5. REBIF [Concomitant]
     Active Substance: INTERFERON BETA-1A
  6. AMPYRA [Concomitant]
     Active Substance: DALFAMPRIDINE
  7. TECFIDERA [Concomitant]
     Active Substance: DIMETHYL FUMARATE

REACTIONS (2)
  - Psoriasis [Unknown]
  - Eczema [Unknown]
